FAERS Safety Report 8589643-1 (Version None)
Quarter: 2012Q3

REPORT INFORMATION
  Report Type: 
  Country: None (occurrence: None)
  Receive Date: 20120813
  Receipt Date: 20120807
  Transmission Date: 20120928
  Serious: Yes (Hospitalization)
  Sender: FDA-Public Use
  Company Number: JP-ABBOTT-11P-087-0886801-00

PATIENT
  Sex: Male
  Weight: 60.3 kg

DRUGS (14)
  1. HUMIRA [Suspect]
     Dates: start: 20110224, end: 20110224
  2. SULFAMETHOXAZOLE AND TRIMETHOPRIM [Concomitant]
     Indication: PNEUMOCYSTIS JIROVECI PNEUMONIA
  3. PREDNISOLONE [Concomitant]
     Dosage: 50 MG
     Dates: start: 20100924
  4. PREDNISOLONE [Concomitant]
     Dosage: 40 MG
     Dates: start: 20111008
  5. SULFAMETHOXAZOLE AND TRIMETHOPRIM [Concomitant]
     Indication: PROPHYLAXIS
     Route: 048
  6. PREDNISOLONE [Concomitant]
     Dosage: 11 MG
     Dates: start: 20110801
  7. ATORVASTATIN CALCIUM [Concomitant]
     Indication: DYSLIPIDAEMIA
     Dosage: 10MG DAILY
     Route: 048
     Dates: start: 20110210
  8. HUMIRA [Suspect]
     Dates: start: 20110306, end: 20120610
  9. MESALAMINE [Concomitant]
     Indication: CROHN'S DISEASE
     Dosage: 1.5G DAILY
     Route: 048
  10. LANSOPRAZOLE [Concomitant]
     Indication: GASTRITIS PROPHYLAXIS
     Dosage: 15MG DAILY
     Route: 048
  11. ALENDRONATE SODIUM [Concomitant]
     Indication: OSTEOPOROSIS PROPHYLAXIS
     Route: 048
  12. HUMIRA [Suspect]
     Indication: CROHN'S DISEASE
     Route: 058
     Dates: start: 20110210, end: 20110210
  13. PREDNISOLONE [Concomitant]
     Indication: DEMYELINATING POLYNEUROPATHY
     Dosage: 60 MG
     Route: 048
     Dates: start: 20100827
  14. PREDNISOLONE [Concomitant]
     Dosage: 35 MG
     Dates: start: 20101022

REACTIONS (1)
  - DEMYELINATING POLYNEUROPATHY [None]
